FAERS Safety Report 4885901-2 (Version None)
Quarter: 2006Q1

REPORT INFORMATION
  Report Type: 
  Country: None (occurrence: None)
  Receive Date: 20060117
  Receipt Date: 20060110
  Transmission Date: 20060701
  Serious: Yes (Death, Hospitalization, Other)
  Sender: FDA-Public Use
  Company Number: 2006AL000120

PATIENT
  Sex: Male

DRUGS (1)
  1. KADIAN [Suspect]
     Dosage: 100 MG

REACTIONS (2)
  - COMA [None]
  - COMPLETED SUICIDE [None]
